FAERS Safety Report 6510856-4 (Version None)
Quarter: 2009Q4

REPORT INFORMATION
  Report Type: 
  Country: None (occurrence: None)
  Receive Date: 20091222
  Receipt Date: 20090317
  Transmission Date: 20100525
  Serious: No
  Sender: FDA-Public Use
  Company Number: US-ASTRAZENECA-2009UW01065

PATIENT
  Age: 55 Year
  Sex: Male
  Weight: 101.6 kg

DRUGS (6)
  1. CRESTOR [Suspect]
     Indication: BLOOD CHOLESTEROL INCREASED
     Dosage: UNKNOWN
     Route: 048
  2. ASPIRIN [Concomitant]
  3. LEVOXYL [Concomitant]
  4. METOPROLOL TARTRATE [Concomitant]
  5. BLOOD PRESSURE MEDICINE [Concomitant]
     Indication: BLOOD PRESSURE
  6. XANAX [Concomitant]

REACTIONS (2)
  - MYALGIA [None]
  - PAIN [None]
